FAERS Safety Report 10768226 (Version 2)
Quarter: 2015Q1

REPORT INFORMATION
  Report Type: Spontaneous
  Country: US (occurrence: US)
  Receive Date: 20150206
  Receipt Date: 20150326
  Transmission Date: 20150721
  Serious: No
  Sender: FDA-Public Use
  Company Number: US-ASTRAZENECA-2015SE09651

PATIENT
  Age: 73 Year
  Sex: Male
  Weight: 105.2 kg

DRUGS (5)
  1. BYETTA [Suspect]
     Active Substance: EXENATIDE
     Indication: TYPE 2 DIABETES MELLITUS
     Route: 058
     Dates: start: 2014
  2. BYETTA [Suspect]
     Active Substance: EXENATIDE
     Indication: TYPE 2 DIABETES MELLITUS
     Route: 058
     Dates: start: 2014
  3. ATENOLOL. [Suspect]
     Active Substance: ATENOLOL
     Indication: HYPERTENSION
     Dosage: DAILY
     Route: 048
  4. BYETTA [Suspect]
     Active Substance: EXENATIDE
     Indication: TYPE 2 DIABETES MELLITUS
     Route: 058
     Dates: start: 2014, end: 2014
  5. ALLOPURINOL. [Concomitant]
     Active Substance: ALLOPURINOL
     Indication: GOUT
     Route: 048

REACTIONS (6)
  - Weight decreased [Unknown]
  - Therapeutic response unexpected [Unknown]
  - Nausea [Recovered/Resolved]
  - Malaise [Recovered/Resolved]
  - Diarrhoea [Unknown]
  - Abdominal pain upper [Unknown]

NARRATIVE: CASE EVENT DATE: 2014
